FAERS Safety Report 23876359 (Version 1)
Quarter: 2024Q2

REPORT INFORMATION
  Report Type: Spontaneous
  Country: US (occurrence: US)
  Receive Date: 20240520
  Receipt Date: 20240520
  Transmission Date: 20240715
  Serious: No
  Sender: FDA-Public Use
  Company Number: US-CIPLA LTD.-2024US03059

PATIENT

DRUGS (4)
  1. ALBUTEROL [Suspect]
     Active Substance: ALBUTEROL
     Indication: Product used for unknown indication
     Dosage: 2 PUFFS (180 MCG) IN THE MORNING AND 2 PUFFS (180 MCG) AT NIGHT OR MORE
     Route: 065
  2. ALBUTEROL [Suspect]
     Active Substance: ALBUTEROL
     Dosage: 2 PUFFS (180 MCG) IN THE MORNING AND 2 PUFFS (180 MCG) AT NIGHT OR MORE
     Route: 065
     Dates: start: 202402
  3. ALBUTEROL [Suspect]
     Active Substance: ALBUTEROL
     Dosage: 3 PUFFS (270 MICROGRAM)
     Route: 065
     Dates: start: 20240306
  4. ALBUTEROL [Suspect]
     Active Substance: ALBUTEROL
     Dosage: 8 PUFFS A DAY (720 MCG)
     Route: 065
     Dates: start: 202403

REACTIONS (5)
  - Dyspnoea [Unknown]
  - Intentional product use issue [Unknown]
  - Device delivery system issue [Unknown]
  - Product quality issue [Unknown]
  - Device issue [Unknown]

NARRATIVE: CASE EVENT DATE: 20240306
